FAERS Safety Report 5126223-4 (Version None)
Quarter: 2006Q3

REPORT INFORMATION
  Report Type: 
  Country: None (occurrence: None)
  Receive Date: 20060824
  Receipt Date: 20060501
  Transmission Date: 20061208
  Serious: Yes (Hospitalization)
  Sender: FDA-Public Use
  Company Number: WAES 0604USA00556

PATIENT
  Age: 77 Year
  Sex: Female

DRUGS (4)
  1. VYTORIN [Suspect]
     Indication: HYPERLIPIDAEMIA
     Dosage: 10-40 MG/DAILY/PO
     Route: 048
     Dates: start: 20050101, end: 20050331
  2. VERAPAMIL [Suspect]
     Indication: HYPERTENSION
     Dosage: 240 MG/DAILY/PO
     Route: 048
     Dates: end: 20060331
  3. EVISTA [Concomitant]
  4. PROTONIX [Concomitant]

REACTIONS (7)
  - ANAEMIA [None]
  - ANOREXIA [None]
  - BLOOD POTASSIUM DECREASED [None]
  - FLUID OVERLOAD [None]
  - HYPOXIA [None]
  - PAIN IN EXTREMITY [None]
  - RHABDOMYOLYSIS [None]
